FAERS Safety Report 4805739-1 (Version None)
Quarter: 2005Q4

REPORT INFORMATION
  Report Type: 
  Country: None (occurrence: None)
  Receive Date: 20051018
  Receipt Date: 20051010
  Transmission Date: 20060501
  Serious: Yes (Hospitalization, Other)
  Sender: FDA-Public Use
  Company Number: EM2005-0489

PATIENT
  Sex: Male

DRUGS (4)
  1. PROLEUKIN; CHIRON CORPORATION [Suspect]
     Dates: start: 20050324, end: 20050329
  2. INTERFERON ALFA (INTERFERON ALFA) [Suspect]
  3. FLUOROURACIL [Suspect]
  4. ASPIRIN [Concomitant]

REACTIONS (4)
  - CEREBRAL INFARCTION [None]
  - CHEST PAIN [None]
  - FALL [None]
  - URINARY RETENTION [None]
